FAERS Safety Report 16146103 (Version 1)
Quarter: 2019Q2

REPORT INFORMATION
  Report Type: Report from Study
  Country: ES (occurrence: ES)
  Receive Date: 20190402
  Receipt Date: 20190402
  Transmission Date: 20190711
  Serious: Yes (Other)
  Sender: FDA-Public Use
  Company Number: ES-SA-2019SA084778

PATIENT
  Sex: Female

DRUGS (2)
  1. METFORMIN [Concomitant]
     Active Substance: METFORMIN HYDROCHLORIDE
     Indication: TYPE 2 DIABETES MELLITUS
     Route: 048
  2. INSULIN GLARGINE [Suspect]
     Active Substance: INSULIN GLARGINE
     Indication: TYPE 2 DIABETES MELLITUS
     Dosage: 34 IU
     Route: 058

REACTIONS (5)
  - Vocal cord paralysis [Recovering/Resolving]
  - Cellulitis [Recovered/Resolved]
  - Hypoglycaemia [Recovered/Resolved]
  - Pharyngeal ulceration [Recovering/Resolving]
  - Oropharyngeal discomfort [Recovering/Resolving]
